FAERS Safety Report 21547835 (Version 1)
Quarter: 2022Q4

REPORT INFORMATION
  Report Type: Spontaneous
  Country: US (occurrence: None)
  Receive Date: 20221102
  Receipt Date: 20221102
  Transmission Date: 20230113
  Serious: Yes (Hospitalization)
  Sender: FDA-Public Use
  Company Number: None

PATIENT
  Sex: Female

DRUGS (15)
  1. SILDENAFIL [Suspect]
     Active Substance: SILDENAFIL
     Indication: Pulmonary arterial hypertension
     Dosage: TAKE 1 TABLET BY MOUTH TWICE DAILY?
     Route: 048
     Dates: start: 20211019
  2. SILDENAFIL [Suspect]
     Active Substance: SILDENAFIL
     Dosage: FREQUENCY : TWICE A DAY;?
     Route: 049
  3. AMOXICILLIN [Concomitant]
     Active Substance: AMOXICILLIN
  4. CARVEDILOL [Concomitant]
     Active Substance: CARVEDILOL
  5. COREG [Concomitant]
     Active Substance: CARVEDILOL
  6. ELIQUIS [Concomitant]
     Active Substance: APIXABAN
  7. ENTRESTO [Concomitant]
     Active Substance: SACUBITRIL\VALSARTAN
  8. FERROUS SULFATE [Concomitant]
     Active Substance: FERROUS SULFATE
  9. FOLIC ACID [Concomitant]
     Active Substance: FOLIC ACID
  10. OPSUMIT [Concomitant]
     Active Substance: MACITENTAN
  11. POTASSIUM POW CHLORIDE [Concomitant]
  12. SPIRONOLACTONE [Concomitant]
     Active Substance: SPIRONOLACTONE
  13. TORSEMIDE [Concomitant]
     Active Substance: TORSEMIDE
  14. VITAMIN B12 [Concomitant]
     Active Substance: CYANOCOBALAMIN
  15. VITAMIN D3 [Concomitant]
     Active Substance: CHOLECALCIFEROL

REACTIONS (1)
  - Cholecystectomy [None]
